FAERS Safety Report 11273243 (Version 2)
Quarter: 2015Q3

REPORT INFORMATION
  Report Type: Spontaneous
  Country: BR (occurrence: BR)
  Receive Date: 20150715
  Receipt Date: 20150814
  Transmission Date: 20151125
  Serious: Yes (Death)
  Sender: FDA-Public Use
  Company Number: BR-SA-2015SA101171

PATIENT
  Sex: Male
  Weight: 80 kg

DRUGS (6)
  1. CLEXANE [Suspect]
     Active Substance: ENOXAPARIN SODIUM
     Indication: HAEMORRHAGE PROPHYLAXIS
     Dosage: ROUTE: 4 INCHES BELOW THE NAVEL?STRENGTH: 20 MG
     Dates: end: 201411
  2. ENALAPRIL [Concomitant]
     Active Substance: ENALAPRIL
     Indication: HYPERTENSION
  3. MANIVASC [Concomitant]
     Active Substance: MANIDIPINE HYDROCHLORIDE
  4. CLEXANE [Suspect]
     Active Substance: ENOXAPARIN SODIUM
     Indication: PLATELET COUNT DECREASED
     Dosage: ROUTE: 4 INCHES BELOW THE NAVEL?STRENGTH: 20 MG
     Dates: end: 201411
  5. CLEXANE [Suspect]
     Active Substance: ENOXAPARIN SODIUM
     Indication: COAGULATION FACTOR DEFICIENCY
     Dosage: ROUTE: 4 INCHES BELOW THE NAVEL?STRENGTH: 20 MG
     Dates: end: 201411
  6. CLEXANE [Suspect]
     Active Substance: ENOXAPARIN SODIUM
     Indication: ANAEMIA
     Dosage: ROUTE: 4 INCHES BELOW THE NAVEL?STRENGTH: 20 MG
     Dates: end: 201411

REACTIONS (6)
  - Aortic stenosis [Fatal]
  - Hypertension [Fatal]
  - Hepatitis C [Fatal]
  - Pneumonia [Fatal]
  - Cardiac failure [Fatal]
  - Coronary artery disease [Fatal]

NARRATIVE: CASE EVENT DATE: 20150419
